FAERS Safety Report 4467718-6 (Version None)
Quarter: 2004Q4

REPORT INFORMATION
  Report Type: 
  Country: None (occurrence: None)
  Receive Date: 20041004
  Receipt Date: 20041004
  Transmission Date: 20050328
  Serious: No
  Sender: FDA-Public Use
  Company Number: None

PATIENT
  Sex: Male
  Weight: 92.9874 kg

DRUGS (2)
  1. VIOXX MERCK MK-0663 BLIND STUDY [Suspect]
     Indication: ARTHRITIS
     Dosage: DAILY ORAL
     Route: 048
     Dates: start: 19991008, end: 20000310
  2. PLACEBO [Suspect]

REACTIONS (5)
  - BLOOD PRESSURE INCREASED [None]
  - CEREBROVASCULAR ACCIDENT [None]
  - DIZZINESS [None]
  - LIVER DISORDER [None]
  - RENAL DISORDER [None]
